FAERS Safety Report 6353977-1 (Version None)
Quarter: 2009Q3

REPORT INFORMATION
  Report Type: 
  Country: None (occurrence: None)
  Receive Date: 20090913
  Receipt Date: 20090902
  Transmission Date: 20100115
  Serious: Yes (Death)
  Sender: FDA-Public Use
  Company Number: US-BAXTER-2009BH013915

PATIENT
  Sex: Female

DRUGS (3)
  1. PURE POWDERED GLUTAMINE [Suspect]
     Indication: DRUG USE FOR UNKNOWN INDICATION
     Route: 065
     Dates: start: 20090401
  2. PURE POWDERED GLUTAMINE [Suspect]
     Route: 065
     Dates: start: 20090201
  3. PURE POWDERED GLUTAMINE [Suspect]
     Route: 065
     Dates: start: 20080201

REACTIONS (1)
  - DEATH [None]
